FAERS Safety Report 15229951 (Version 1)
Quarter: 2018Q4

REPORT INFORMATION
  Report Type: Spontaneous
  Country: FR (occurrence: FR)
  Receive Date: 20180802
  Receipt Date: 20180802
  Transmission Date: 20190204
  Serious: Yes (Other)
  Sender: FDA-Public Use
  Company Number: FR-TEVA-2018-FR-932833

PATIENT
  Age: 64 Year
  Sex: Male
  Weight: 98 kg

DRUGS (1)
  1. VERAPAMIL TEVA L.P. 120 MG, G?LULE ? LIB?RATION PROLONG?E [Suspect]
     Active Substance: VERAPAMIL HYDROCHLORIDE
     Indication: HYPERTENSION
     Dosage: 68 MILLIGRAM DAILY;
     Route: 048
     Dates: start: 20180208, end: 20180417

REACTIONS (6)
  - Tinnitus [Recovering/Resolving]
  - Cardiac failure [Recovering/Resolving]
  - Arrhythmia [Recovering/Resolving]
  - Oedema peripheral [Recovering/Resolving]
  - Faecaloma [Recovering/Resolving]
  - Oedema peripheral [Recovered/Resolved]

NARRATIVE: CASE EVENT DATE: 20180305
